FAERS Safety Report 17350101 (Version 1)
Quarter: 2020Q1

REPORT INFORMATION
  Report Type: Spontaneous
  Country: US (occurrence: US)
  Receive Date: 20200130
  Receipt Date: 20200130
  Transmission Date: 20200409
  Serious: No
  Sender: FDA-Public Use
  Company Number: US-MACLEODS PHARMACEUTICALS US LTD-MAC2020024949

PATIENT

DRUGS (1)
  1. OSELTAMIVIR [Suspect]
     Active Substance: OSELTAMIVIR
     Indication: INFLUENZA
     Dosage: 2 DOSAGE FORM, QD, 2 TABLETS A DAY
     Route: 048
     Dates: start: 20200116, end: 20200117

REACTIONS (1)
  - Middle ear effusion [Unknown]

NARRATIVE: CASE EVENT DATE: 20200118
